FAERS Safety Report 7699476-6 (Version None)
Quarter: 2011Q3

REPORT INFORMATION
  Report Type: 
  Country: None (occurrence: None)
  Receive Date: 20110820
  Receipt Date: 20110104
  Transmission Date: 20111222
  Serious: No
  Sender: FDA-Public Use
  Company Number: US-ALLERGAN-1100019US

PATIENT
  Age: 65 Year
  Sex: Female

DRUGS (2)
  1. SANCTURA XR [Suspect]
     Indication: POLLAKIURIA
     Dosage: 60 MG, QD
     Route: 048
     Dates: start: 20101214, end: 20101229
  2. SIMVASTATIN [Concomitant]
     Indication: BLOOD CHOLESTEROL
     Dosage: 40 MG, QD
     Route: 048

REACTIONS (4)
  - RENAL PAIN [None]
  - MUSCULAR WEAKNESS [None]
  - MYALGIA [None]
  - DRUG INEFFECTIVE [None]
